FAERS Safety Report 4356865-5 (Version None)
Quarter: 2004Q2

REPORT INFORMATION
  Report Type: 
  Country: None (occurrence: None)
  Receive Date: 20040512
  Receipt Date: 20040324
  Transmission Date: 20050107
  Serious: Yes (Other)
  Sender: FDA-Public Use
  Company Number: JP-MERCK-0403USA02320

PATIENT
  Age: 62 Year
  Sex: Male

DRUGS (12)
  1. ALLOPURINOL [Concomitant]
     Route: 048
     Dates: start: 20020511, end: 20031001
  2. ALLOPURINOL [Concomitant]
     Route: 048
     Dates: start: 20040323
  3. AMLODIPINE [Concomitant]
     Route: 048
     Dates: start: 20020703, end: 20031001
  4. AMLODIPINE [Concomitant]
     Route: 048
     Dates: start: 20040323
  5. BLOPRESS [Suspect]
     Indication: HYPERTENSION
     Route: 048
     Dates: start: 20020412, end: 20031001
  6. BLOPRESS [Suspect]
     Route: 048
     Dates: start: 20030101
  7. GASTROM [Suspect]
     Indication: DUODENAL ULCER
     Route: 048
     Dates: start: 20020507, end: 20031001
  8. GASTROM [Suspect]
     Route: 048
     Dates: start: 20030101
  9. PEPCID [Suspect]
     Indication: DUODENAL ULCER
     Route: 048
     Dates: start: 20020703, end: 20031001
  10. PEPCID [Suspect]
     Route: 048
     Dates: start: 20030101
  11. ACTOS [Suspect]
     Indication: DIABETES MELLITUS
     Route: 048
     Dates: start: 20030424, end: 20031001
  12. ACTOS [Suspect]
     Route: 048
     Dates: start: 20030101

REACTIONS (5)
  - BLOOD PRESSURE DECREASED [None]
  - BONE DISORDER [None]
  - DIABETES MELLITUS [None]
  - DUODENAL ULCER [None]
  - VISUAL ACUITY REDUCED [None]
